FAERS Safety Report 7918379-2 (Version None)
Quarter: 2011Q4

REPORT INFORMATION
  Report Type: 
  Country: None (occurrence: None)
  Receive Date: 20111116
  Receipt Date: 20111109
  Transmission Date: 20120403
  Serious: Yes (Hospitalization)
  Sender: FDA-Public Use
  Company Number: US-ELI_LILLY_AND_COMPANY-US201109004339

PATIENT
  Age: 56 Year
  Sex: Male
  Weight: 108.2 kg

DRUGS (15)
  1. VISIPAQUE [Concomitant]
     Dosage: UNK, UNKNOWN
     Route: 065
  2. METOPROLOL TARTRATE [Concomitant]
     Dosage: UNK, UNKNOWN
     Route: 065
  3. PEPCID [Concomitant]
     Dosage: 40 MG, UNKNOWN
     Route: 065
  4. ATENOLOL [Concomitant]
     Dosage: 100 MG, UNKNOWN
     Route: 065
  5. PLAVIX [Concomitant]
     Dosage: 75 MG, UNKNOWN
     Route: 048
  6. LANTUS [Concomitant]
     Dosage: UNK, UNKNOWN
     Route: 065
  7. EFFIENT [Suspect]
     Indication: STENT PLACEMENT
     Dosage: 10 MG, QD
     Route: 048
     Dates: start: 20110815, end: 20110907
  8. CRESTOR [Concomitant]
     Dosage: 10 MG, UNKNOWN
     Route: 065
  9. ACETYLCYSTEINE [Concomitant]
     Dosage: 600 MG, UNKNOWN
     Route: 048
  10. CATAPRES                                /UNK/ [Concomitant]
     Dosage: 0.2 MG, UNKNOWN
     Route: 065
  11. LISINOPRIL [Concomitant]
     Dosage: UNK, UNKNOWN
     Route: 065
  12. ASPIRIN [Concomitant]
     Dosage: 325 MG, UNKNOWN
     Route: 065
  13. PLAVIX [Concomitant]
     Dosage: 300 MG, LOADING
     Route: 048
  14. FRAGMIN [Concomitant]
     Route: 058
  15. PERCOCET [Concomitant]
     Dosage: UNK, PRN
     Route: 065

REACTIONS (6)
  - CHEST PAIN [None]
  - BLISTER [None]
  - PRURITUS [None]
  - HYPERSENSITIVITY [None]
  - SKIN EXFOLIATION [None]
  - RASH [None]
